FAERS Safety Report 9278860 (Version 3)
Quarter: 2013Q2

REPORT INFORMATION
  Report Type: Spontaneous
  Country: AU (occurrence: AU)
  Receive Date: 20130508
  Receipt Date: 20130610
  Transmission Date: 20140414
  Serious: Yes (Death, Hospitalization)
  Sender: FDA-Public Use
  Company Number: AU-CELGENEUS-008-C4047-13051131

PATIENT
  Age: 63 Year
  Sex: Male
  Weight: 101 kg

DRUGS (11)
  1. CC-4047 [Suspect]
     Indication: PLASMA CELL MYELOMA
     Dosage: 4 MILLIGRAM
     Route: 048
     Dates: start: 20130322, end: 20130430
  2. DEXAMETHASONE [Concomitant]
     Indication: PLASMA CELL MYELOMA
     Route: 065
     Dates: start: 201304
  3. KAPANOL [Concomitant]
     Indication: PRODUCT USED FOR UNKNOWN INDICATION
     Route: 065
  4. BACTRIM [Concomitant]
     Indication: PROPHYLAXIS
     Route: 065
  5. FLUCONAZOLE [Concomitant]
     Indication: PROPHYLAXIS
     Route: 065
  6. GABAPENTIN [Concomitant]
     Indication: PAIN
     Dosage: 1200 MILLIGRAM
     Route: 065
  7. AMOXICILLIN [Concomitant]
     Indication: PYREXIA
     Route: 065
  8. VALACICLOVIR [Concomitant]
     Indication: PROPHYLAXIS
     Route: 065
  9. TRANEXAMIC ACID [Concomitant]
     Indication: PRODUCT USED FOR UNKNOWN INDICATION
     Route: 065
  10. TRAMADOL [Concomitant]
     Indication: PAIN
     Route: 065
  11. BISPHOSPHONATES [Concomitant]
     Indication: PRODUCT USED FOR UNKNOWN INDICATION
     Route: 065

REACTIONS (2)
  - Enterococcal sepsis [Fatal]
  - Febrile neutropenia [Fatal]
